FAERS Safety Report 6020226-3 (Version None)
Quarter: 2008Q4

REPORT INFORMATION
  Report Type: 
  Country: None (occurrence: None)
  Receive Date: 20081226
  Receipt Date: 20081216
  Transmission Date: 20090506
  Serious: No
  Sender: FDA-Public Use
  Company Number: PHHY2008DE26708

PATIENT
  Sex: Female
  Weight: 83 kg

DRUGS (2)
  1. ZOMETA [Suspect]
     Indication: METASTASES TO BONE
     Dosage: 4 MG EVERY 4 WEEKS
     Route: 042
     Dates: start: 20080524
  2. ZOMETA [Suspect]
     Indication: HODGKIN'S DISEASE

REACTIONS (1)
  - ARTHRALGIA [None]
